FAERS Safety Report 24186400 (Version 1)
Quarter: 2024Q3

REPORT INFORMATION
  Report Type: Report from Study
  Country: US (occurrence: None)
  Receive Date: 20240808
  Receipt Date: 20240808
  Transmission Date: 20241017
  Serious: Yes (Hospitalization)
  Sender: ASTRAZENECA
  Company Number: 2021A653196

PATIENT
  Age: 753 Month
  Sex: Male

DRUGS (1)
  1. FASENRA [Suspect]
     Active Substance: BENRALIZUMAB
     Indication: Asthma
     Route: 058
     Dates: start: 202002

REACTIONS (4)
  - Intestinal obstruction [Unknown]
  - COVID-19 [Unknown]
  - Wheezing [Unknown]
  - Decreased activity [Unknown]

NARRATIVE: CASE EVENT DATE: 20201201
